FAERS Safety Report 17532230 (Version 13)
Quarter: 2022Q1

REPORT INFORMATION
  Report Type: Report from Study
  Country: CA (occurrence: CA)
  Receive Date: 20200311
  Receipt Date: 20220218
  Transmission Date: 20220424
  Serious: Yes (Hospitalization, Other)
  Sender: FDA-Public Use
  Company Number: CA-BRISTOL-MYERS SQUIBB COMPANY-BMS-2020-019880

PATIENT
  Age: 79 Year
  Sex: Male

DRUGS (18)
  1. APIXABAN [Suspect]
     Active Substance: APIXABAN
     Indication: Product used for unknown indication
     Dosage: 5 MILLIGRAM, BID
     Route: 048
  2. AMLODIPINE [Suspect]
     Active Substance: AMLODIPINE BESYLATE
     Indication: Product used for unknown indication
     Dosage: 10 MILLIGRAM, QD
     Route: 048
  3. CLONAZEPAM [Suspect]
     Active Substance: CLONAZEPAM
     Indication: Product used for unknown indication
     Dosage: 2 MILLIGRAM
     Route: 048
  4. POLYETHYLENE GLYCOL 3350 [Suspect]
     Active Substance: POLYETHYLENE GLYCOL 3350
     Indication: Product used for unknown indication
     Dosage: 17 GRAM, QD
     Route: 048
  5. NUCALA [Suspect]
     Active Substance: MEPOLIZUMAB
     Indication: Asthma
     Dosage: 100 MILLIGRAM, BID
     Route: 042
  6. PREDNISONE [Suspect]
     Active Substance: PREDNISONE
     Indication: Product used for unknown indication
     Dosage: UNK
     Route: 048
  7. RAMIPRIL [Suspect]
     Active Substance: RAMIPRIL
     Indication: Product used for unknown indication
     Dosage: 5 MILLIGRAM, QD
     Route: 048
  8. ALBUTEROL SULFATE [Suspect]
     Active Substance: ALBUTEROL SULFATE
     Indication: Wheezing
     Dosage: 2 DOSAGE FORM
     Route: 065
  9. SPIRIVA RESPIMAT [Suspect]
     Active Substance: TIOTROPIUM BROMIDE
     Indication: Product used for unknown indication
     Dosage: 2 DOSAGE FORM, QD, 0.5 G/DOSE
  10. SULFAMETHOXAZOLE\TRIMETHOPRIM [Suspect]
     Active Substance: SULFAMETHOXAZOLE\TRIMETHOPRIM
     Indication: Product used for unknown indication
     Dosage: 1 DOSAGE FORM, BID
     Route: 048
  11. SYMBICORT [Suspect]
     Active Substance: BUDESONIDE\FORMOTEROL FUMARATE DIHYDRATE
     Indication: Product used for unknown indication
     Dosage: 2 DOSAGE FORM, BID
  12. TIOTROPIUM BROMIDE [Suspect]
     Active Substance: TIOTROPIUM BROMIDE
     Indication: Asthma
     Dosage: 2 DOSAGE FORM, QD
     Route: 065
  13. AMLODIPINE BESYLATE [Suspect]
     Active Substance: AMLODIPINE BESYLATE
     Indication: Product used for unknown indication
     Dosage: 10 MILLIGRAM, QD
     Route: 048
  14. BUDESONIDE\FORMOTEROL FUMARATE [Suspect]
     Active Substance: BUDESONIDE\FORMOTEROL FUMARATE
     Indication: Product used for unknown indication
     Dosage: 2 DOSAGE FORM, BID
  15. ELECTROLYTES NOS\POLYETHYLENE GLYCOL 3350 [Suspect]
     Active Substance: ELECTROLYTES NOS\POLYETHYLENE GLYCOL 3350
     Indication: Product used for unknown indication
     Dosage: 17 GRAM, QD
     Route: 048
  16. ALBUTEROL [Suspect]
     Active Substance: ALBUTEROL
     Indication: Wheezing
     Dosage: 2 DOSAGE FORM
     Route: 065
  17. TIOTROPIUM BROMIDE MONOHYDRATE [Suspect]
     Active Substance: TIOTROPIUM BROMIDE MONOHYDRATE
     Indication: Asthma
     Dosage: 2 DOSAGE FORM, Q12H
  18. TIOTROPIUM BROMIDE MONOHYDRATE [Suspect]
     Active Substance: TIOTROPIUM BROMIDE MONOHYDRATE
     Dosage: 2 DOSAGE FORM, QD

REACTIONS (21)
  - Abdominal pain upper [Unknown]
  - Arrhythmia [Unknown]
  - Asthma [Unknown]
  - Atelectasis [Unknown]
  - Atrial fibrillation [Unknown]
  - Chronic sinusitis [Unknown]
  - Cough [Unknown]
  - Dyspnoea [Unknown]
  - Flatulence [Unknown]
  - Hepatic lesion [Unknown]
  - Hypertension [Unknown]
  - Loss of personal independence in daily activities [Unknown]
  - Lung consolidation [Unknown]
  - Mycobacterial infection [Unknown]
  - Nausea [Unknown]
  - Wheezing [Unknown]
  - Renal mass [Unknown]
  - Sleep disorder due to a general medical condition [Unknown]
  - Small intestinal obstruction [Unknown]
  - Therapeutic product effect incomplete [Unknown]
  - Vomiting [Unknown]
